FAERS Safety Report 24854396 (Version 1)
Quarter: 2025Q1

REPORT INFORMATION
  Report Type: Report from Study
  Country: US (occurrence: US)
  Receive Date: 20250117
  Receipt Date: 20250117
  Transmission Date: 20250409
  Serious: No
  Sender: ACCORD
  Company Number: US-Accord-443854

PATIENT
  Age: 66 Year
  Sex: Male

DRUGS (1)
  1. CLOZAPINE [Suspect]
     Active Substance: CLOZAPINE
     Indication: Product used for unknown indication

REACTIONS (10)
  - Haemoglobin decreased [Recovering/Resolving]
  - Basophil percentage increased [Recovering/Resolving]
  - Haematocrit decreased [Not Recovered/Not Resolved]
  - Mean cell haemoglobin decreased [Recovering/Resolving]
  - Mean cell haemoglobin concentration decreased [Recovering/Resolving]
  - Monocyte percentage increased [Recovered/Resolved]
  - Mean platelet volume decreased [Recovering/Resolving]
  - Neutrophil percentage increased [Recovering/Resolving]
  - Red cell distribution width increased [Recovering/Resolving]
  - Platelet count increased [Unknown]

NARRATIVE: CASE EVENT DATE: 20240715
